FAERS Safety Report 6156371-1 (Version None)
Quarter: 2009Q2

REPORT INFORMATION
  Report Type: 
  Country: None (occurrence: None)
  Receive Date: 20090416
  Receipt Date: 20070726
  Transmission Date: 20091009
  Serious: Yes (Hospitalization)
  Sender: FDA-Public Use
  Company Number: US-ASTRAZENECA-2006UW23366

PATIENT
  Age: 52 Year
  Sex: Female
  Weight: 77.1 kg

DRUGS (20)
  1. SEROQUEL [Suspect]
     Indication: DEPRESSION
     Dosage: 25 MG - 600 MG
     Route: 048
     Dates: start: 20021007
  2. GEODON [Concomitant]
  3. RISPERDAL [Concomitant]
  4. PROZAC [Concomitant]
  5. ABILIFY [Concomitant]
  6. PAXIL [Concomitant]
  7. SYNTHROID [Concomitant]
  8. GLYBURIDE [Concomitant]
  9. COGENTIN [Concomitant]
  10. MIRTAZAPINE [Concomitant]
  11. NORVASC [Concomitant]
  12. GLUCOTROL [Concomitant]
  13. HYZAAR [Concomitant]
  14. LIPITOR [Concomitant]
  15. AMBIEN [Concomitant]
  16. ZYPREXA [Concomitant]
  17. REGULAR INSULIN [Concomitant]
  18. PLAVIX [Concomitant]
  19. ALBUTEROL [Concomitant]
  20. POTASSIUM CHLORIDE [Concomitant]

REACTIONS (25)
  - ASTHENIA [None]
  - CHEST PAIN [None]
  - DIABETES MELLITUS [None]
  - DIPLOPIA [None]
  - DIZZINESS [None]
  - DROOLING [None]
  - DYSPNOEA [None]
  - HEADACHE [None]
  - HYPOAESTHESIA [None]
  - HYPOGLYCAEMIA [None]
  - HYPOKALAEMIA [None]
  - INSOMNIA [None]
  - IRRITABILITY [None]
  - LETHARGY [None]
  - LEUKOPENIA [None]
  - LYMPHOPENIA [None]
  - MACROCYTOSIS [None]
  - NORMOCHROMIC NORMOCYTIC ANAEMIA [None]
  - PIGMENTATION DISORDER [None]
  - PRURITUS [None]
  - RASH [None]
  - SOMNAMBULISM [None]
  - SOMNOLENCE [None]
  - TRAUMATIC HAEMATOMA [None]
  - WEIGHT INCREASED [None]
